FAERS Safety Report 5792938-8 (Version None)
Quarter: 2008Q2

REPORT INFORMATION
  Report Type: 
  Country: None (occurrence: None)
  Receive Date: 20080627
  Receipt Date: 20080618
  Transmission Date: 20081010
  Serious: Yes (Other)
  Sender: FDA-Public Use
  Company Number: GB-AMGEN-US289052

PATIENT
  Sex: Female
  Weight: 79 kg

DRUGS (9)
  1. ENBREL [Suspect]
     Indication: BEHCET'S SYNDROME
     Route: 058
     Dates: start: 20070423, end: 20070524
  2. DOCUSATE SODIUM [Concomitant]
     Dosage: UNKNOWN
     Route: 065
  3. FENTANYL-100 [Concomitant]
     Dosage: UNKNOWN
     Route: 065
  4. METHOTREXATE [Concomitant]
     Dosage: UNKNOWN
     Route: 065
     Dates: start: 20031115, end: 20070524
  5. ROFECOXIB [Concomitant]
     Dosage: UNKNOWN
     Route: 065
  6. SENNA [Concomitant]
     Dosage: UNKNOWN
     Route: 065
  7. SERTRALINE [Concomitant]
     Dosage: UNKNOWN
     Route: 065
  8. DIAZEPAM [Concomitant]
     Dosage: UNKNOWN
     Route: 065
  9. OMEPRAZOLE [Concomitant]
     Dosage: UNKNOWN
     Route: 065

REACTIONS (3)
  - BLISTER [None]
  - RASH ERYTHEMATOUS [None]
  - SKIN LESION [None]
